FAERS Safety Report 9443310 (Version 2)
Quarter: 2014Q1

REPORT INFORMATION
  Report Type: Report from Study
  Country: JP (occurrence: JP)
  Receive Date: 20130806
  Receipt Date: 20140221
  Transmission Date: 20141002
  Serious: Yes (Death, Life-Threatening)
  Sender: FDA-Public Use
  Company Number: JP-B.I. PHARMACEUTICALS,INC./RIDGEFIELD-2013-BI-23579NB

PATIENT
  Age: 81 Year
  Sex: Male
  Weight: 69.2 kg

DRUGS (5)
  1. PRAZAXA [Suspect]
     Indication: CEREBROVASCULAR ACCIDENT PROPHYLAXIS
     Dosage: 220 MG
     Route: 048
     Dates: start: 20121228, end: 20130722
  2. ARICEPT D (DONEPEZIL HYDROCHLORIDE) [Concomitant]
     Dosage: 5 MG
     Route: 048
     Dates: end: 20130722
  3. IRBETAN (IRBESARTAN) [Concomitant]
     Dosage: 50 MG
     Route: 048
     Dates: end: 20130722
  4. EPADEL S (ETHYL ICOSAPENTATE) [Concomitant]
     Dosage: 900 MG
     Route: 048
     Dates: end: 20130722
  5. KIPRES (MONTELUKAST SODIUM) [Concomitant]
     Dosage: 10 MG
     Route: 048
     Dates: end: 20130722

REACTIONS (1)
  - Pneumonia [Fatal]
